FAERS Safety Report 17222277 (Version 1)
Quarter: 2020Q1

REPORT INFORMATION
  Report Type: Spontaneous
  Country: US (occurrence: US)
  Receive Date: 20191231
  Receipt Date: 20191231
  Transmission Date: 20200409
  Serious: No
  Sender: FDA-Public Use
  Company Number: None

PATIENT
  Age: 64 Year
  Sex: Male
  Weight: 73.35 kg

DRUGS (7)
  1. VITAMINS [Concomitant]
     Active Substance: VITAMINS
  2. RESTASIS [Concomitant]
     Active Substance: CYCLOSPORINE
  3. FISH OIL [Concomitant]
     Active Substance: FISH OIL
  4. ATORVASTATIN CALCIUM 40 MG [Suspect]
     Active Substance: ATORVASTATIN CALCIUM
     Indication: BLOOD CHOLESTEROL INCREASED
     Dosage: ?          QUANTITY:1 TABLET(S);?
     Route: 048
     Dates: start: 20190618, end: 20190702
  5. LIVALO [Concomitant]
     Active Substance: PITAVASTATIN CALCIUM
  6. ROSUVASTATIN CALCIUM 20 MG [Suspect]
     Active Substance: ROSUVASTATIN CALCIUM
     Indication: BLOOD CHOLESTEROL INCREASED
     Dosage: ?          QUANTITY:1 TABLET(S);?
     Route: 048
     Dates: start: 20190716, end: 20190719
  7. IRON [Concomitant]
     Active Substance: IRON

REACTIONS (1)
  - Feeling abnormal [None]

NARRATIVE: CASE EVENT DATE: 20190618
